FAERS Safety Report 8181242-9 (Version None)
Quarter: 2012Q1

REPORT INFORMATION
  Report Type: 
  Country: None (occurrence: None)
  Receive Date: 20120302
  Receipt Date: 20120224
  Transmission Date: 20120608
  Serious: Yes (Other)
  Sender: FDA-Public Use
  Company Number: US-US-EMD SERONO, INC.-232705K09USA

PATIENT
  Sex: Female
  Weight: 68 kg

DRUGS (12)
  1. REBIF [Suspect]
     Route: 058
     Dates: start: 20081008, end: 20090901
  2. REBIF [Suspect]
     Indication: MULTIPLE SCLEROSIS
     Route: 058
     Dates: start: 20080814
  3. SAL-TROPINE [Concomitant]
     Indication: SALIVARY HYPERSECRETION
  4. TYLENOL W/ CODEINE [Concomitant]
     Indication: PAIN
  5. SIMVASTATIN [Concomitant]
     Indication: BLOOD CHOLESTEROL INCREASED
  6. TYLENOL PM [Concomitant]
     Indication: SLEEP DISORDER
  7. REBIF [Suspect]
     Route: 058
     Dates: start: 20090901
  8. OMEPRAZOLE [Concomitant]
     Indication: GASTRIC DISORDER
  9. LORAZEPAM [Concomitant]
     Indication: MUSCLE SPASMS
  10. DETROL [Concomitant]
     Indication: BLADDER DISORDER
  11. EXTRA STRENGTH TYLENOL [Concomitant]
     Indication: HEADACHE
  12. CHLORZOXAZONE [Concomitant]
     Indication: MULTIPLE SCLEROSIS

REACTIONS (3)
  - NEOPLASM SKIN [None]
  - NON-HODGKIN'S LYMPHOMA [None]
  - NEOPLASM [None]
